FAERS Safety Report 19815229 (Version 1)
Quarter: 2021Q3

REPORT INFORMATION
  Report Type: Spontaneous
  Country: US (occurrence: US)
  Receive Date: 20210910
  Receipt Date: 20210910
  Transmission Date: 20211014
  Serious: No
  Sender: FDA-Public Use
  Company Number: None

PATIENT
  Age: 55 Year
  Sex: Male
  Weight: 94.1 kg

DRUGS (1)
  1. RUXIENCE [Suspect]
     Active Substance: RITUXIMAB-PVVR
     Indication: FOLLICULAR LYMPHOMA
     Dates: start: 20210625

REACTIONS (11)
  - Chills [None]
  - Nausea [None]
  - Vomiting [None]
  - Unresponsive to stimuli [None]
  - Blood pressure decreased [None]
  - Heart rate decreased [None]
  - Somnolence [None]
  - Infusion related reaction [None]
  - Pallor [None]
  - Lethargy [None]
  - Hot flush [None]

NARRATIVE: CASE EVENT DATE: 20210625
